FAERS Safety Report 15337239 (Version 1)
Quarter: 2018Q3

REPORT INFORMATION
  Report Type: Report from Study
  Country: None (occurrence: US)
  Receive Date: 20180831
  Receipt Date: 20180831
  Transmission Date: 20181010
  Serious: Yes (Other)
  Sender: FDA-Public Use
  Company Number: US-ABBVIE-18K-163-2464553-00

PATIENT
  Sex: Female

DRUGS (1)
  1. HUMIRA [Suspect]
     Active Substance: ADALIMUMAB
     Indication: CROHN^S DISEASE
     Route: 058

REACTIONS (6)
  - Joint injury [Unknown]
  - Drug level below therapeutic [Unknown]
  - Corneal lesion [Unknown]
  - Stress [Unknown]
  - Crohn^s disease [Unknown]
  - Vision blurred [Unknown]
